FAERS Safety Report 18638459 (Version 9)
Quarter: 2023Q4

REPORT INFORMATION
  Report Type: Spontaneous
  Country: CZ (occurrence: CZ)
  Receive Date: 20201219
  Receipt Date: 20231110
  Transmission Date: 20240110
  Serious: Yes (Hospitalization, Other)
  Sender: FDA-Public Use
  Company Number: CZ-BRISTOL-MYERS SQUIBB COMPANY-BMS-2020-094630

PATIENT
  Age: 86 Year
  Sex: Female

DRUGS (59)
  1. ALPRAZOLAM [Suspect]
     Active Substance: ALPRAZOLAM
     Indication: Product used for unknown indication
     Dosage: UNK
     Route: 065
  2. OMEPRAZOLE [Suspect]
     Active Substance: OMEPRAZOLE
     Indication: Product used for unknown indication
     Dosage: UNK
     Route: 065
  3. PANTOPRAZOLE [Suspect]
     Active Substance: PANTOPRAZOLE
     Indication: Product used for unknown indication
     Dosage: UNK
     Route: 065
  4. RAMIPRIL [Suspect]
     Active Substance: RAMIPRIL
     Indication: Product used for unknown indication
     Dosage: UNK
     Route: 065
  5. TRAMADOL [Interacting]
     Active Substance: TRAMADOL\TRAMADOL HYDROCHLORIDE
     Indication: Product used for unknown indication
     Dosage: OVERUSED
     Route: 065
  6. FOLIC ACID [Interacting]
     Active Substance: FOLIC ACID
     Indication: Product used for unknown indication
     Dosage: 1 DOSAGE FORM, ONCE A DAY
     Route: 048
  7. FOLIC ACID [Interacting]
     Active Substance: FOLIC ACID
     Dosage: UNK, EVERY WEEK
     Route: 048
  8. AMLODIPINE BESYLATE [Interacting]
     Active Substance: AMLODIPINE BESYLATE
     Indication: Hypertension
     Dosage: 5 MILLIGRAM, ONCE A DAY
     Route: 048
  9. AMIODARONE [Suspect]
     Active Substance: AMIODARONE
     Indication: Atrial fibrillation
     Dosage: 200 MILLIGRAM
     Route: 048
  10. METOPROLOL SUCCINATE [Interacting]
     Active Substance: METOPROLOL SUCCINATE
     Indication: Hypertension
     Dosage: 25 MILLIGRAM, ONCE A DAY
     Route: 048
  11. BISACODYL [Interacting]
     Active Substance: BISACODYL
     Indication: Constipation
     Dosage: 10-20 GTT IN THE EVENING
     Route: 065
  12. METOPROLOL [Suspect]
     Active Substance: METOPROLOL
     Indication: Product used for unknown indication
     Dosage: 25 MILLIGRAM, ONCE A DAY
     Route: 065
  13. METOPROLOL [Suspect]
     Active Substance: METOPROLOL
     Indication: Hypertension
  14. CALCIUM\CHOLECALCIFEROL [Interacting]
     Active Substance: CALCIUM\CHOLECALCIFEROL
     Indication: Calcium deficiency
     Dosage: 1 DOSAGE FORM, ONCE A DAY (0-0-1 )
     Route: 048
  15. MAGNESIUM ASPARTATE\POTASSIUM ASPARTATE [Suspect]
     Active Substance: MAGNESIUM ASPARTATE\POTASSIUM ASPARTATE
     Indication: Product used for unknown indication
     Dosage: 1 DOSAGE FORM, ONCE A DAY
     Route: 048
  16. MAGNESIUM ASPARTATE\POTASSIUM ASPARTATE [Suspect]
     Active Substance: MAGNESIUM ASPARTATE\POTASSIUM ASPARTATE
     Indication: Encephalopathy
  17. CORDARONE [Interacting]
     Active Substance: AMIODARONE HYDROCHLORIDE
     Indication: Atrial fibrillation
     Dosage: 200 MILLIGRAM, ONCE A DAY, 1-0-0
     Route: 048
  18. ACETAMINOPHEN\CAFFEINE\PROPYPHENAZONE [Interacting]
     Active Substance: ACETAMINOPHEN\CAFFEINE\PROPYPHENAZONE
     Indication: Product used for unknown indication
     Dosage: 500 MILLIGRAM, TWO TIMES A DAY
     Route: 065
  19. SODIUM CHONDROITIN SULFATE [Interacting]
     Active Substance: SODIUM CHONDROITIN SULFATE
     Indication: Rheumatoid arthritis
     Dosage: 800 MILLIGRAM, ONCE A DAY
     Route: 048
  20. SODIUM CHONDROITIN SULFATE [Interacting]
     Active Substance: SODIUM CHONDROITIN SULFATE
     Indication: Constipation
  21. CAPTOPRIL [Interacting]
     Active Substance: CAPTOPRIL
     Indication: Product used for unknown indication
     Dosage: UNK
     Route: 065
  22. CAPTOPRIL [Interacting]
     Active Substance: CAPTOPRIL
     Indication: Hypertension
  23. CONTROLOC [Suspect]
     Active Substance: PANTOPRAZOLE SODIUM
     Indication: Nausea
     Dosage: 20 MILLIGRAM, ONCE A DAY
     Route: 048
  24. FENTANYL [Interacting]
     Active Substance: FENTANYL\FENTANYL CITRATE
     Indication: Post herpetic neuralgia
     Dosage: 25 MICROGRAM, EVERY HOUR (Q72H)
     Route: 062
     Dates: start: 2015
  25. FENTANYL [Interacting]
     Active Substance: FENTANYL\FENTANYL CITRATE
     Indication: Pain
  26. DONEPEZIL HYDROCHLORIDE [Suspect]
     Active Substance: DONEPEZIL HYDROCHLORIDE
     Indication: Product used for unknown indication
     Dosage: UNK
     Route: 065
  27. ELIQUIS [Interacting]
     Active Substance: APIXABAN
     Indication: Anticoagulant therapy
     Dosage: 5 MILLIGRAM, ONCE A DAY
     Route: 065
  28. ELIQUIS [Interacting]
     Active Substance: APIXABAN
     Dosage: 5 MILLIGRAM, TWO TIMES A DAY
     Route: 048
  29. EUTHYROX [Interacting]
     Active Substance: LEVOTHYROXINE SODIUM
     Indication: Autoimmune thyroiditis
     Dosage: 100 MICROGRAM, ONCE A DAY
     Route: 065
  30. SODIUM PICOSULFATE [Interacting]
     Active Substance: SODIUM PICOSULFATE
     Indication: Constipation
     Dosage: 1 DOSAGE FORM (1DF=10-20 GUTTES)
     Route: 065
  31. SODIUM PICOSULFATE [Interacting]
     Active Substance: SODIUM PICOSULFATE
     Dosage: 1 DOSAGE FORM
     Route: 065
  32. GUAIFENESIN [Suspect]
     Active Substance: GUAIFENESIN
     Indication: Product used for unknown indication
     Dosage: UNK
     Route: 065
  33. ZOLPIDEM TARTRATE [Interacting]
     Active Substance: ZOLPIDEM TARTRATE
     Indication: Drug abuse
     Dosage: UNK
     Route: 065
  34. IBUPROFEN [Interacting]
     Active Substance: IBUPROFEN
     Indication: Pain
     Dosage: UNK
     Route: 065
  35. MAGNESIUM ASPARTATE [Interacting]
     Active Substance: MAGNESIUM ASPARTATE
     Indication: Product used for unknown indication
     Dosage: UNK
     Route: 065
  36. MAGNESIUM ASPARTATE\POTASSIUM ASPARTATE [Interacting]
     Active Substance: MAGNESIUM ASPARTATE\POTASSIUM ASPARTATE
     Indication: Product used for unknown indication
     Dosage: UNK
     Route: 065
  37. MAGNESIUM ASPARTATE\POTASSIUM ASPARTATE [Interacting]
     Active Substance: MAGNESIUM ASPARTATE\POTASSIUM ASPARTATE
     Dosage: 1 DOSAGE FORM, ONCE A DAY
     Route: 048
  38. METAMIZOLE [Interacting]
     Active Substance: METAMIZOLE
     Indication: Post herpetic neuralgia
     Dosage: 1000 MILLIGRAM, ONCE A DAY (500 MILLIGRAM, BID)
     Route: 048
     Dates: start: 2015
  39. METHOTREXATE SODIUM [Interacting]
     Active Substance: METHOTREXATE SODIUM
     Indication: Rheumatoid arthritis
     Dosage: 10 MILLIGRAM, EVERY WEEK
     Route: 048
     Dates: start: 2010
  40. ACETAMINOPHEN\CAFFEINE\PROPYPHENAZONE [Suspect]
     Active Substance: ACETAMINOPHEN\CAFFEINE\PROPYPHENAZONE
     Indication: Hypertension
     Dosage: 500 MILLIGRAM, TWO TIMES A DAY
     Route: 065
  41. NICOFURANOSE [Suspect]
     Active Substance: NICOFURANOSE
     Indication: Encephalopathy
     Dosage: ONCE A DAY
     Route: 048
  42. MELOXICAM [Interacting]
     Active Substance: MELOXICAM
     Indication: Post herpetic neuralgia
     Dosage: 1 DOSAGE FORM, EVERY WEEK
     Route: 048
     Dates: start: 2015
  43. MELOXICAM [Interacting]
     Active Substance: MELOXICAM
     Indication: Pain
     Dosage: 15 MILLIGRAM, EVERY WEEK TAKEN APPROXIMATELY 3 TIMES PER WEEK
     Route: 048
     Dates: start: 2015
  44. OXAZEPAM [Interacting]
     Active Substance: OXAZEPAM
     Indication: Drug abuse
     Dosage: UNK/OVERUSED
     Route: 065
  45. PANADOL [Interacting]
     Active Substance: ACETAMINOPHEN
     Indication: Pain
     Dosage: 1.5 DOSAGE FORM,(3-4 TIMES A DAY)
     Route: 065
  46. PANADOL [Interacting]
     Active Substance: ACETAMINOPHEN
     Indication: Hypertension
     Dosage: 500 MILLIGRAM
     Route: 065
  47. PANADOL [Interacting]
     Active Substance: ACETAMINOPHEN
     Dosage: 10000 MILLIGRAM, ONCE A DAY
     Route: 065
  48. PANADOL [Interacting]
     Active Substance: ACETAMINOPHEN
     Dosage: 750 MILLIGRAM, ONCE A DAY (1.5 TABLETS 3-4 TIMES A DAY)
     Route: 048
     Dates: start: 2015
  49. PREDNISONE [Interacting]
     Active Substance: PREDNISONE
     Indication: Product used for unknown indication
     Dosage: 5 MILLIGRAM, QD
     Route: 065
  50. PREDNISONE [Interacting]
     Active Substance: PREDNISONE
     Indication: Steroid therapy
     Dosage: 2-0-0
     Route: 065
  51. PREDNISONE [Interacting]
     Active Substance: PREDNISONE
     Dosage: 5 MILLIGRAM, ONCE A DAY
     Route: 048
  52. POTASSIUM ASPARTATE [Interacting]
     Active Substance: POTASSIUM ASPARTATE
     Indication: Product used for unknown indication
     Dosage: UNK
     Route: 065
  53. PREGABALIN [Suspect]
     Active Substance: PREGABALIN
     Indication: Post herpetic neuralgia
     Dosage: UNK
     Route: 065
  54. ROSUVASTATIN CALCIUM [Interacting]
     Active Substance: ROSUVASTATIN CALCIUM
     Indication: Product used for unknown indication
     Dosage: 20 MILLIGRAM, ONCE A DAY
     Route: 048
  55. ZOLPIDEM TARTRATE [Interacting]
     Active Substance: ZOLPIDEM TARTRATE
     Indication: Drug abuse
     Dosage: UNK/OVERUSE
     Route: 065
  56. TELMISARTAN [Interacting]
     Active Substance: TELMISARTAN
     Indication: Hypertension
     Dosage: 1 DOSAGE FORM, ONCE A DAY, (1DF=80/12.5 MG)
     Route: 048
  57. TELMISARTAN [Interacting]
     Active Substance: TELMISARTAN
     Dosage: 80 MG/12.5 MG, ONE DOSAGE FORM DAILY
     Route: 065
  58. HYDROCHLOROTHIAZIDE\TELMISARTAN [Suspect]
     Active Substance: HYDROCHLOROTHIAZIDE\TELMISARTAN
     Indication: Product used for unknown indication
     Dosage: 1 DOSAGE FORM, ONCE A DAY (1-0-0; 12.5 MG/80 MG )
     Route: 048
  59. TRAZODONE [Suspect]
     Active Substance: TRAZODONE HYDROCHLORIDE
     Indication: Product used for unknown indication
     Dosage: UNK
     Route: 065

REACTIONS (43)
  - Fall [Recovering/Resolving]
  - Vertigo [Recovered/Resolved]
  - Cognitive disorder [Recovered/Resolved]
  - Urinary retention [Recovered/Resolved]
  - Confusional state [Recovered/Resolved]
  - Nausea [Recovered/Resolved]
  - Hyponatraemia [Recovered/Resolved]
  - Listless [Recovering/Resolving]
  - Atrial fibrillation [Recovered/Resolved]
  - Head discomfort [Recovered/Resolved]
  - Apathy [Recovered/Resolved]
  - Delirium [Recovered/Resolved]
  - Oxygen saturation decreased [Recovered/Resolved]
  - Hypokalaemia [Recovered/Resolved]
  - Hypertension [Recovering/Resolving]
  - Mobility decreased [Recovered/Resolved]
  - Drug interaction [Recovered/Resolved]
  - Loss of personal independence in daily activities [Recovered/Resolved]
  - Encephalopathy [Recovering/Resolving]
  - Contusion [Recovered/Resolved]
  - Fracture [Recovered/Resolved]
  - Pelvic fracture [Recovered/Resolved]
  - Hypoacusis [Recovered/Resolved]
  - Foreign body [Recovered/Resolved]
  - Dizziness [Recovered/Resolved]
  - Bedridden [Recovered/Resolved]
  - Dehydration [Recovered/Resolved]
  - Reduced facial expression [Recovered/Resolved]
  - Condition aggravated [Recovered/Resolved]
  - Poor quality sleep [Recovered/Resolved]
  - Affect lability [Recovered/Resolved]
  - Anxiety [Recovered/Resolved]
  - Restlessness [Recovered/Resolved]
  - Overdose [Recovered/Resolved]
  - Incorrect dose administered [Unknown]
  - Medication error [Recovered/Resolved]
  - Prescription drug used without a prescription [Unknown]
  - General physical health deterioration [Recovering/Resolving]
  - Liver function test increased [Recovered/Resolved]
  - Discomfort [Recovered/Resolved]
  - Immobile [Recovered/Resolved]
  - Pelvic fracture [Recovered/Resolved]
  - Sleep disorder [Recovering/Resolving]

NARRATIVE: CASE EVENT DATE: 20180101
